FAERS Safety Report 6682912-1 (Version None)
Quarter: 2010Q2

REPORT INFORMATION
  Report Type: 
  Country: None (occurrence: None)
  Receive Date: 20100415
  Receipt Date: 20100413
  Transmission Date: 20101027
  Serious: Yes (Hospitalization)
  Sender: FDA-Public Use
  Company Number: B0646994A

PATIENT
  Age: 79 Year
  Sex: Male

DRUGS (6)
  1. AUGMENTIN '125' [Suspect]
     Indication: OSTEITIS
     Dosage: 2G THREE TIMES PER DAY
     Route: 048
     Dates: start: 20100211, end: 20100215
  2. CLAMOXYL [Suspect]
     Indication: OSTEITIS
     Dosage: 2G PER DAY
     Route: 048
     Dates: start: 20100211, end: 20100215
  3. TAVANIC [Suspect]
     Indication: OSTEITIS
     Dosage: 500MG TWICE PER DAY
     Route: 048
     Dates: start: 20100211, end: 20100215
  4. PREVISCAN [Concomitant]
     Indication: DRUG USE FOR UNKNOWN INDICATION
     Route: 065
  5. TAHOR [Concomitant]
     Indication: DRUG USE FOR UNKNOWN INDICATION
     Route: 065
  6. AMIODARONE HCL [Concomitant]
     Indication: DRUG USE FOR UNKNOWN INDICATION
     Route: 065

REACTIONS (4)
  - PURPURA [None]
  - RENAL FAILURE ACUTE [None]
  - SHOCK [None]
  - TUBULOINTERSTITIAL NEPHRITIS [None]
